FAERS Safety Report 19175170 (Version 2)
Quarter: 2021Q2

REPORT INFORMATION
  Report Type: Report from Study
  Country: US (occurrence: US)
  Receive Date: 20210423
  Receipt Date: 20210521
  Transmission Date: 20210717
  Serious: Yes (Hospitalization, Other)
  Sender: FDA-Public Use
  Company Number: US-MALLINCKRODT PHARMACEUTICALS-T201906342

PATIENT
  Age: 79 Year
  Sex: Female

DRUGS (4)
  1. REPOSITORY CORTICOTROPIN INJECTION [Suspect]
     Active Substance: CORTICOTROPIN
     Indication: MYOPATHY
     Dosage: 80 UNITS / 1 ML,  2 TIMES PER WEEK, MONDAY AND THURSDAY
     Route: 058
     Dates: start: 2020, end: 20210401
  2. IMURAN [Concomitant]
     Active Substance: AZATHIOPRINE
     Indication: PRODUCT USED FOR UNKNOWN INDICATION
     Dosage: UNK
     Route: 065
  3. REPOSITORY CORTICOTROPIN INJECTION [Suspect]
     Active Substance: CORTICOTROPIN
     Dosage: UNK TWICE A WEEK
     Route: 058
     Dates: start: 20210414
  4. REPOSITORY CORTICOTROPIN INJECTION [Suspect]
     Active Substance: CORTICOTROPIN
     Indication: POLYMYOSITIS
     Dosage: 80 UNITS / 1 ML,  2 TIMES PER WEEK,MONDAY AND THURSDAY
     Route: 058
     Dates: start: 20180124, end: 202001

REACTIONS (19)
  - Loss of consciousness [Unknown]
  - Blood glucose increased [Unknown]
  - Taste disorder [Not Recovered/Not Resolved]
  - Urine output decreased [Not Recovered/Not Resolved]
  - Fatigue [Unknown]
  - Illness [Unknown]
  - Asthenia [Not Recovered/Not Resolved]
  - Weight decreased [Unknown]
  - Dry mouth [Unknown]
  - Speech disorder [Recovering/Resolving]
  - Drug withdrawal syndrome [Unknown]
  - Memory impairment [Unknown]
  - Impaired driving ability [Unknown]
  - Nausea [Not Recovered/Not Resolved]
  - Pyrexia [Not Recovered/Not Resolved]
  - Product dose omission issue [Not Recovered/Not Resolved]
  - Pollakiuria [Not Recovered/Not Resolved]
  - Feeling abnormal [Unknown]
  - Urinary tract infection [Unknown]

NARRATIVE: CASE EVENT DATE: 20190912
